FAERS Safety Report 4394028-8 (Version None)
Quarter: 2004Q3

REPORT INFORMATION
  Report Type: 
  Country: None (occurrence: None)
  Receive Date: 20040707
  Receipt Date: 20040624
  Transmission Date: 20050211
  Serious: Yes (Hospitalization)
  Sender: FDA-Public Use
  Company Number: CHPA2003US02248

PATIENT
  Age: 18 Year
  Sex: Female
  Weight: 90.7 kg

DRUGS (5)
  1. EX-LAX LAXATIVE UNKNOWN FORMULA (NCH) (UNKNOWN) UNKNOWN [Suspect]
     Dosage: ORAL
     Route: 048
     Dates: start: 19970101
  2. CORRECTOL [Suspect]
     Dosage: ORAL
     Route: 048
     Dates: start: 19970101
  3. DARVOCET-N (DEXTROPROPOXYPHENE NAPSILATE) [Concomitant]
  4. ANUSOL / USA/ (PRAMOCAINE HYDROCHLORIDE) [Concomitant]
  5. HYDROCORTISONE [Concomitant]

REACTIONS (16)
  - ANAL FISSURE [None]
  - BLOOD PRESSURE DIASTOLIC DECREASED [None]
  - CONSTIPATION [None]
  - DIZZINESS [None]
  - DRUG DEPENDENCE [None]
  - ECONOMIC PROBLEM [None]
  - EMOTIONAL DISORDER [None]
  - FAECALOMA [None]
  - HAEMORRHOIDS [None]
  - INJURY [None]
  - INTESTINAL OBSTRUCTION [None]
  - LAXATIVE ABUSE [None]
  - POST PROCEDURAL COMPLICATION [None]
  - RECTAL HAEMORRHAGE [None]
  - RECTAL PROLAPSE [None]
  - UMBILICAL HERNIA [None]
